FAERS Safety Report 14734207 (Version 2)
Quarter: 2018Q2

REPORT INFORMATION
  Report Type: Spontaneous
  Country: TR (occurrence: TR)
  Receive Date: 20180409
  Receipt Date: 20180417
  Transmission Date: 20180711
  Serious: Yes (Other)
  Sender: FDA-Public Use
  Company Number: TR-TEVA-2018-TR-877850

PATIENT
  Age: 4 Decade
  Sex: Female

DRUGS (7)
  1. ARSENIC TRIOXIDE [Suspect]
     Active Substance: ARSENIC TRIOXIDE
     Indication: ACUTE PROMYELOCYTIC LEUKAEMIA
     Dosage: (10 MG/DAY) FOR FIVE DAYS; RESTARTED AT A HALF DOSE
     Route: 065
     Dates: start: 20141230, end: 20150103
  2. ALL TRANS RETINOIC ACID [Suspect]
     Active Substance: TRETINOIN
     Indication: ACUTE PROMYELOCYTIC LEUKAEMIA
     Dosage: (70MG/DAY)
     Route: 065
     Dates: start: 20141223
  3. ARSENIC TRIOXIDE [Suspect]
     Active Substance: ARSENIC TRIOXIDE
     Dosage: LATER CONTINUED AT 5 MG/DAY FOR 5 DAYS/WEEK
     Route: 065
     Dates: start: 20150119, end: 20150215
  4. N-ACETYL CYSTEINE [Concomitant]
     Route: 065
  5. ARSENIC TRIOXIDE [Suspect]
     Active Substance: ARSENIC TRIOXIDE
     Dosage: (5 MG/DAY); LATER CONTINUED AT 5 MG/DAY
     Route: 065
     Dates: start: 20150112, end: 20150118
  6. ARSENIC TRIOXIDE [Suspect]
     Active Substance: ARSENIC TRIOXIDE
     Dosage: 5MG/DAY FOR 5DAYS/WEEK
     Route: 065
     Dates: start: 20150216, end: 20150220
  7. METHYLPREDNISOLONE. [Concomitant]
     Active Substance: METHYLPREDNISOLONE
     Indication: ACUTE PROMYELOCYTIC LEUKAEMIA
     Route: 065
     Dates: start: 20150112, end: 20150118

REACTIONS (3)
  - Hepatotoxicity [Recovering/Resolving]
  - Off label use [Recovered/Resolved]
  - VIth nerve paralysis [Recovered/Resolved]

NARRATIVE: CASE EVENT DATE: 201501
